FAERS Safety Report 9668044 (Version 2)
Quarter: 2013Q4

REPORT INFORMATION
  Report Type: Spontaneous
  Country: US (occurrence: None)
  Receive Date: 20131101
  Receipt Date: 20131114
  Transmission Date: 20140711
  Serious: Yes (Other)
  Sender: FDA-Public Use
  Company Number: 20130611

PATIENT
  Age: 47 Year
  Sex: Female

DRUGS (5)
  1. ONDANSETRON [Suspect]
     Indication: ANTIEMETIC SUPPORTIVE CARE
  2. CLOZAPINE [Suspect]
     Indication: PRODUCT USED FOR UNKNOWN INDICATION
  3. CITALOPRAM [Suspect]
     Indication: PRODUCT USED FOR UNKNOWN INDICATION
  4. METOCLOPRAMIDE [Suspect]
     Indication: ANTIEMETIC SUPPORTIVE CARE
  5. PROMETHAZINE [Concomitant]

REACTIONS (8)
  - Serotonin syndrome [None]
  - Nausea [None]
  - Vomiting [None]
  - Salivary hypersecretion [None]
  - Muscle spasticity [None]
  - Clonus [None]
  - Agitation [None]
  - Hyperreflexia [None]
